FAERS Safety Report 6899111-0 (Version None)
Quarter: 2010Q3

REPORT INFORMATION
  Report Type: 
  Country: None (occurrence: None)
  Receive Date: 20100802
  Receipt Date: 20080118
  Transmission Date: 20110219
  Serious: No
  Sender: FDA-Public Use
  Company Number: US-PFIZER INC-2007103941

PATIENT
  Sex: Female

DRUGS (4)
  1. LYRICA [Suspect]
     Dates: start: 20070501
  2. OXYBUTYNIN CHLORIDE [Suspect]
     Indication: HYPERTONIC BLADDER
     Dosage: 1 EVERY 2 WEEKS1PATCH
     Route: 062
     Dates: start: 20070901
  3. OXYBUTYNIN CHLORIDE [Suspect]
     Dosage: 1PATCH,FREQUENCY: 2/WEEK
     Route: 062
     Dates: start: 20061101
  4. SYNTHROID [Concomitant]

REACTIONS (1)
  - ONYCHOCLASIS [None]
